FAERS Safety Report 5393276-8 (Version None)
Quarter: 2007Q3

REPORT INFORMATION
  Report Type: 
  Country: None (occurrence: None)
  Receive Date: 20070723
  Receipt Date: 20070716
  Transmission Date: 20080115
  Serious: Yes (Hospitalization)
  Sender: FDA-Public Use
  Company Number: PHBS2007BR12014

PATIENT
  Sex: Female

DRUGS (2)
  1. METHERGINE [Suspect]
     Indication: VAGINAL HAEMORRHAGE
     Dosage: 1 DF, TID
  2. RIVOTRIL [Suspect]
     Dosage: UNK, ONCE/SINGLE

REACTIONS (3)
  - INTENTIONAL OVERDOSE [None]
  - MOOD ALTERED [None]
  - NERVOUSNESS [None]
